FAERS Safety Report 9121354 (Version 3)
Quarter: 2014Q3

REPORT INFORMATION
  Report Type: Report from Study
  Country: GB (occurrence: GB)
  Receive Date: 20130225
  Receipt Date: 20140917
  Transmission Date: 20150326
  Serious: Yes (Hospitalization)
  Sender: FDA-Public Use
  Company Number: GB-ASTRAZENECA-2012SE88992

PATIENT
  Age: 25405 Day
  Sex: Male
  Weight: 67.2 kg

DRUGS (2)
  1. GEMCITABINE [Suspect]
     Active Substance: GEMCITABINE\GEMCITABINE HYDROCHLORIDE
     Indication: ADENOCARCINOMA PANCREAS
     Route: 042
     Dates: start: 20111214
  2. VANDETANIB. [Suspect]
     Active Substance: VANDETANIB
     Indication: ADENOCARCINOMA PANCREAS
     Route: 048
     Dates: start: 20111214

REACTIONS (2)
  - Gingivitis [Not Recovered/Not Resolved]
  - Pyrexia [Recovered/Resolved]

NARRATIVE: CASE EVENT DATE: 20120331
